FAERS Safety Report 7482080-2 (Version None)
Quarter: 2011Q2

REPORT INFORMATION
  Report Type: 
  Country: None (occurrence: None)
  Receive Date: 20110516
  Receipt Date: 20110506
  Transmission Date: 20111010
  Serious: Yes (Other)
  Sender: FDA-Public Use
  Company Number: PHHY2011PL38122

PATIENT
  Sex: Male
  Weight: 75 kg

DRUGS (3)
  1. FLUOROURACIL [Suspect]
     Indication: RECTAL CANCER
     Dosage: 915 MG
     Route: 042
     Dates: start: 20100907, end: 20110104
  2. OXALIPLATIN [Suspect]
     Indication: RECTAL CANCER
     Dosage: 150 MG
     Route: 042
     Dates: start: 20100907, end: 20101228
  3. CALCIUM FOLINATE ( CALCII FOLINAS) [Suspect]
     Indication: RECTAL CANCER
     Dosage: 915 MG
     Route: 042
     Dates: start: 20100907, end: 20110104

REACTIONS (2)
  - ANGIOEDEMA [None]
  - FACE OEDEMA [None]
